FAERS Safety Report 14625521 (Version 1)
Quarter: 2018Q1

REPORT INFORMATION
  Report Type: Spontaneous
  Country: US (occurrence: US)
  Receive Date: 20180312
  Receipt Date: 20180312
  Transmission Date: 20180509
  Serious: No
  Sender: FDA-Public Use
  Company Number: US-ALLERGAN-1715478US

PATIENT
  Sex: Female

DRUGS (3)
  1. OXYTROL [Suspect]
     Active Substance: OXYBUTYNIN
     Indication: POLLAKIURIA
     Dosage: 1 PATCH, BI-WEEKLY (EVERY 4 (Q4) DAYS)
     Route: 062
     Dates: start: 201702, end: 201705
  2. NORVASC [Concomitant]
     Active Substance: AMLODIPINE BESYLATE
     Indication: HYPERTENSION
     Dosage: UNK, QD
     Route: 048
  3. PLAVIX [Concomitant]
     Active Substance: CLOPIDOGREL BISULFATE
     Indication: THROMBOSIS PROPHYLAXIS
     Dosage: UNK, QD
     Route: 048

REACTIONS (5)
  - Wrong technique in product usage process [Unknown]
  - Application site pruritus [Recovered/Resolved]
  - Application site erythema [Recovered/Resolved]
  - Back pain [Recovering/Resolving]
  - Product use issue [Unknown]

NARRATIVE: CASE EVENT DATE: 2017
